FAERS Safety Report 17661563 (Version 1)
Quarter: 2020Q2

REPORT INFORMATION
  Report Type: Report from Study
  Country: GB (occurrence: GB)
  Receive Date: 20200413
  Receipt Date: 20200413
  Transmission Date: 20200713
  Serious: Yes (Hospitalization)
  Sender: FDA-Public Use
  Company Number: NVSC2019GB075493

PATIENT
  Sex: Female

DRUGS (1)
  1. COSENTYX [Suspect]
     Active Substance: SECUKINUMAB
     Indication: PSORIATIC ARTHROPATHY
     Dosage: 300 MG, QMO (PREFILLED PEN)
     Route: 058
     Dates: start: 2019

REACTIONS (5)
  - Blood potassium increased [Unknown]
  - Renal disorder [Unknown]
  - Malaise [Unknown]
  - Liver disorder [Unknown]
  - Influenza [Unknown]
